FAERS Safety Report 8734559 (Version 2)
Quarter: 2013Q4

REPORT INFORMATION
  Report Type: Spontaneous
  Country: US (occurrence: US)
  Receive Date: 20120821
  Receipt Date: 20131101
  Transmission Date: 20140711
  Serious: No
  Sender: FDA-Public Use
  Company Number: US-009507513-1207USA000891

PATIENT
  Sex: Female

DRUGS (1)
  1. COPPERTONE WATERBABIES LOTION SPF 30 [Suspect]
     Indication: PRODUCT USED FOR UNKNOWN INDICATION
     Dosage: UNK, Q3H
     Dates: start: 20120621, end: 20120626

REACTIONS (1)
  - Sunburn [Unknown]
